FAERS Safety Report 7314435-0 (Version None)
Quarter: 2011Q1

REPORT INFORMATION
  Report Type: 
  Country: None (occurrence: None)
  Receive Date: 20110225
  Receipt Date: 20100909
  Transmission Date: 20110831
  Serious: No
  Sender: FDA-Public Use
  Company Number: US-MYLANLABS-2010S1015285

PATIENT
  Age: 16 Year
  Sex: Male
  Weight: 77.11 kg

DRUGS (4)
  1. FLONASE [Concomitant]
  2. SINGULAIR [Concomitant]
  3. AMNESTEEM [Suspect]
     Dates: end: 20100802
  4. AMNESTEEM [Suspect]
     Indication: ACNE
     Dates: start: 20100701

REACTIONS (2)
  - ASTHENIA [None]
  - MYALGIA [None]
